FAERS Safety Report 8671414 (Version 2)
Quarter: 2012Q4

REPORT INFORMATION
  Report Type: Report from Study
  Country: JP (occurrence: JP)
  Receive Date: 20120718
  Receipt Date: 20121017
  Transmission Date: 20130627
  Serious: Yes (Hospitalization)
  Sender: FDA-Public Use
  Company Number: JP-GLAXOSMITHKLINE-B0811366A

PATIENT
  Age: 32 Year
  Sex: Female
  Weight: 57 kg

DRUGS (5)
  1. LAMICTAL [Suspect]
     Indication: TONIC CONVULSION
     Dosage: 25MG Per day
     Route: 048
     Dates: start: 20111012, end: 20111213
  2. LAMICTAL [Suspect]
     Indication: TONIC CONVULSION
     Dosage: 25MG Per day
     Route: 048
     Dates: start: 20111214, end: 20120207
  3. LAMICTAL [Suspect]
     Indication: TONIC CONVULSION
     Dosage: 25MG Twice per day
     Route: 048
     Dates: start: 20120208, end: 20120327
  4. DEPAKENE R [Concomitant]
     Indication: TONIC CONVULSION
     Route: 048
  5. MYSTAN [Concomitant]
     Indication: TONIC CONVULSION
     Route: 048
     Dates: end: 20111012

REACTIONS (2)
  - Abortion [Unknown]
  - Exposure during pregnancy [Unknown]
